FAERS Safety Report 10094138 (Version 1)
Quarter: 2014Q2

REPORT INFORMATION
  Report Type: Spontaneous
  Country: US (occurrence: US)
  Receive Date: 20140422
  Receipt Date: 20140422
  Transmission Date: 20141212
  Serious: Yes (Hospitalization)
  Sender: FDA-Public Use
  Company Number: US-BRISTOL-MYERS SQUIBB COMPANY-20636072

PATIENT
  Age: 60 Year
  Sex: Female
  Weight: 158.73 kg

DRUGS (1)
  1. ABILIFY [Suspect]
     Indication: DEPRESSION
     Dates: start: 201302

REACTIONS (1)
  - Femur fracture [Unknown]
